FAERS Safety Report 9500417 (Version 1)
Quarter: 2013Q1

REPORT INFORMATION
  Report Type: Spontaneous
  Country: US (occurrence: None)
  Receive Date: 20130107
  Receipt Date: 20130107
  Transmission Date: 20140127
  Serious: Yes (Other)
  Sender: FDA-Public Use
  Company Number: PHEH2012US017835

PATIENT
  Age: 48 Year
  Sex: Female

DRUGS (9)
  1. GILENYA (FTY) [Suspect]
     Indication: MULTIPLE SCLEROSIS
     Route: 048
     Dates: start: 20120911
  2. BACLOFEN [Concomitant]
  3. NEURONTIN (GABAPENTIN) [Concomitant]
  4. LOPRESSOR (METOPROLOL TARTRATE) [Suspect]
  5. TRAMADOL HYDROCHLORIDE (TRAMADOL HYDROCHLORIDE) [Concomitant]
  6. TRAZODONE  (TRAZODONE) [Concomitant]
  7. PROVIGIL (MODAFINIL) [Concomitant]
  8. SULINDAC [Concomitant]
  9. SERTRALINE (SERTRALINE) [Concomitant]

REACTIONS (3)
  - Bradycardia [None]
  - Somnolence [None]
  - Fatigue [None]
